FAERS Safety Report 9608259 (Version 2)
Quarter: 2013Q4

REPORT INFORMATION
  Report Type: Spontaneous
  Country: US (occurrence: US)
  Receive Date: 20131009
  Receipt Date: 20131105
  Transmission Date: 20140711
  Serious: No
  Sender: FDA-Public Use
  Company Number: US-PFIZER INC-2013286681

PATIENT
  Age: 59 Year
  Sex: Female

DRUGS (1)
  1. SILVADENE [Suspect]
     Dosage: UNK, AS NEEDED
     Dates: start: 2010

REACTIONS (1)
  - Skin discolouration [Unknown]
